FAERS Safety Report 5927971-6 (Version None)
Quarter: 2008Q4

REPORT INFORMATION
  Report Type: 
  Country: None (occurrence: None)
  Receive Date: 20081023
  Receipt Date: 20081022
  Transmission Date: 20090506
  Serious: Yes (Hospitalization)
  Sender: FDA-Public Use
  Company Number: FR-WYE-G02404908

PATIENT
  Sex: Male

DRUGS (1)
  1. RHINADVIL [Suspect]
     Dosage: ONE SINGLE DOSE
     Route: 048
     Dates: start: 20080530, end: 20080530

REACTIONS (4)
  - ANGIOEDEMA [None]
  - CYTOLYTIC HEPATITIS [None]
  - SKIN PLAQUE [None]
  - THROAT IRRITATION [None]
